FAERS Safety Report 10035359 (Version 2)
Quarter: 2014Q2

REPORT INFORMATION
  Report Type: Spontaneous
  Country: US (occurrence: US)
  Receive Date: 20140325
  Receipt Date: 20140401
  Transmission Date: 20141212
  Serious: Yes (Death, Life-Threatening, Hospitalization)
  Sender: FDA-Public Use
  Company Number: US-ACTELION-A-US2014-96199

PATIENT
  Age: 60 Week
  Sex: Male

DRUGS (26)
  1. TRACLEER [Suspect]
     Indication: PULMONARY HYPERTENSION
     Dosage: UNK
     Route: 050
     Dates: start: 201306, end: 201307
  2. TRACLEER [Suspect]
     Dosage: 31.25 MG, BID
     Route: 050
     Dates: start: 201307, end: 201311
  3. TRACLEER [Suspect]
     Dosage: 23 MG, BID
     Route: 050
     Dates: start: 201311, end: 20131120
  4. TRACLEER [Suspect]
     Dosage: 17 MG, BID
     Route: 050
     Dates: start: 20131120
  5. TRACLEER [Suspect]
     Dosage: 31.25 MG, BID
     Route: 050
     Dates: start: 201312
  6. SILDENAFIL [Concomitant]
     Dosage: UNK
     Route: 042
     Dates: start: 201304, end: 201307
  7. SILDENAFIL [Concomitant]
     Dosage: UNK
     Route: 048
     Dates: start: 201307
  8. FLOLAN [Concomitant]
     Dosage: 40 NG/KG, PER MIN
     Dates: start: 201305
  9. DOBUTAMINE [Concomitant]
     Dosage: UNK
     Route: 042
     Dates: start: 201304
  10. DOPAMINE [Concomitant]
     Dosage: UNK
     Route: 042
     Dates: start: 201304
  11. MILRINONE [Concomitant]
     Dosage: UNK
     Route: 042
     Dates: start: 201304
  12. LASIX [Concomitant]
     Dosage: UNK
     Route: 042
     Dates: start: 201304
  13. NORCURON [Concomitant]
     Dosage: UNK
     Route: 042
     Dates: start: 201304
  14. XOPENEX [Concomitant]
  15. BUDESONIDE [Concomitant]
  16. DIURIL [Concomitant]
  17. POTASSIUM [Concomitant]
  18. CULTURELLE [Concomitant]
  19. ZANTAC [Concomitant]
  20. CALCIFEROL [Concomitant]
  21. ZINC [Concomitant]
  22. IMODIUM [Concomitant]
  23. VERSED [Concomitant]
  24. ATIVAN [Concomitant]
  25. METHADONE [Concomitant]
  26. MORPHINE [Concomitant]

REACTIONS (18)
  - Death [Fatal]
  - Nodal rhythm [Recovered/Resolved]
  - Cardio-respiratory arrest [Recovered/Resolved]
  - Sepsis [Unknown]
  - Tracheitis [Unknown]
  - Packed red blood cell transfusion [Unknown]
  - Cerebral atrophy [Unknown]
  - Liver function test abnormal [Unknown]
  - Chronic respiratory failure [Unknown]
  - Oxygen saturation decreased [Unknown]
  - Hypotension [Recovered/Resolved]
  - Culture positive [Unknown]
  - Blood culture positive [Unknown]
  - Culture urine positive [Unknown]
  - Diarrhoea [Recovering/Resolving]
  - Blood pressure increased [Unknown]
  - Abdominal distension [Recovering/Resolving]
  - Tachycardia [Recovered/Resolved]
